FAERS Safety Report 6072807-9 (Version None)
Quarter: 2009Q1

REPORT INFORMATION
  Report Type: 
  Country: None (occurrence: None)
  Receive Date: 20090205
  Receipt Date: 20090122
  Transmission Date: 20090719
  Serious: Yes (Hospitalization, Other)
  Sender: FDA-Public Use
  Company Number: DSA_33138_2009

PATIENT
  Age: 56 Year
  Sex: Male

DRUGS (17)
  1. DILTIAZEM [Suspect]
     Indication: ANGINA PECTORIS
     Dosage: (60 MG BID)
  2. DILTIAZEM [Suspect]
     Indication: CARDIAC FAILURE
     Dosage: (60 MG BID)
  3. SIMVASTATIN [Suspect]
     Indication: DRUG USE FOR UNKNOWN INDICATION
     Dosage: (40 MG QD)
  4. RANOLAZINE [Suspect]
     Indication: ANGINA PECTORIS
     Dosage: (500 MG QD)
  5. RANOLAZINE [Suspect]
     Indication: CARDIAC FAILURE
     Dosage: (500 MG QD)
  6. CARVEDILOL [Suspect]
     Indication: ANGINA PECTORIS
     Dosage: (12.5 MG BID)
  7. CARVEDILOL [Suspect]
     Indication: CARDIAC FAILURE
     Dosage: (12.5 MG BID)
  8. CYCLOSPORINE [Suspect]
     Indication: DRUG USE FOR UNKNOWN INDICATION
     Dosage: (75 MG BID)
  9. METOPROLOL TARTRATE [Concomitant]
  10. FUROSEMIDE [Concomitant]
  11. TAMSULOSIN HCL [Concomitant]
  12. SERTRALINE [Concomitant]
  13. FLUDROCORTISONE [Concomitant]
  14. CLONIDINE HCL [Concomitant]
  15. ESOMEPRAZOLE MAGNESIUM [Concomitant]
  16. CLOPIDOGREL [Concomitant]
  17. INSULIN GLARGINE [Concomitant]

REACTIONS (4)
  - ANGINA PECTORIS [None]
  - CARDIAC FAILURE [None]
  - DISEASE RECURRENCE [None]
  - RHABDOMYOLYSIS [None]
